FAERS Safety Report 6029150-3 (Version None)
Quarter: 2009Q1

REPORT INFORMATION
  Report Type: 
  Country: None (occurrence: None)
  Receive Date: 20090106
  Receipt Date: 20080827
  Transmission Date: 20090719
  Serious: No
  Sender: FDA-Public Use
  Company Number: US-TYCO HEALTHCARE/MALLINCKRODT-T200801418

PATIENT

DRUGS (1)
  1. OPTIMARK [Suspect]
     Indication: ANGIOGRAM
     Dosage: 15 ML (CC), SINGLE
     Route: 042
     Dates: start: 20080826, end: 20080826

REACTIONS (3)
  - COUGH [None]
  - NAUSEA [None]
  - OROPHARYNGEAL PAIN [None]
